FAERS Safety Report 16971064 (Version 3)
Quarter: 2019Q4

REPORT INFORMATION
  Report Type: Spontaneous
  Country: IL (occurrence: IL)
  Receive Date: 20191029
  Receipt Date: 20191105
  Transmission Date: 20200122
  Serious: Yes (Death, Hospitalization, Other)
  Sender: FDA-Public Use
  Company Number: IL-GLAXOSMITHKLINE-IL2019EME158920

PATIENT

DRUGS (1)
  1. NUCALA [Suspect]
     Active Substance: MEPOLIZUMAB
     Indication: PRODUCT USED FOR UNKNOWN INDICATION
     Dosage: UNK

REACTIONS (35)
  - Multiple organ dysfunction syndrome [Unknown]
  - Abdominal pain [Unknown]
  - Stenotrophomonas infection [Unknown]
  - Blood bilirubin increased [Unknown]
  - Nausea [Unknown]
  - Tachycardia [Unknown]
  - Dermatitis bullous [Unknown]
  - Gamma-glutamyltransferase increased [Unknown]
  - Coagulopathy [Unknown]
  - Acute kidney injury [Unknown]
  - Body temperature increased [Unknown]
  - Blister [Unknown]
  - Restlessness [Unknown]
  - Jaundice [Unknown]
  - Liver injury [Unknown]
  - Pain [Unknown]
  - Left ventricular dysfunction [Unknown]
  - Pleural effusion [Unknown]
  - Disseminated varicella zoster vaccine virus infection [Unknown]
  - Urosepsis [Unknown]
  - Obstructive pancreatitis [Unknown]
  - Oliguria [Unknown]
  - Rash [Unknown]
  - Varicella zoster virus infection [Unknown]
  - Dyspnoea [Unknown]
  - Cardiac failure [Unknown]
  - Condition aggravated [Unknown]
  - Blood alkaline phosphatase increased [Unknown]
  - Sepsis [Unknown]
  - Polymerase chain reaction positive [Unknown]
  - Haemodynamic instability [Unknown]
  - Purpura [Unknown]
  - Pancytopenia [Unknown]
  - Klebsiella infection [Unknown]
  - Death [Fatal]

NARRATIVE: CASE EVENT DATE: 20190918
